FAERS Safety Report 12515542 (Version 2)
Quarter: 2016Q3

REPORT INFORMATION
  Report Type: Spontaneous
  Country: US (occurrence: US)
  Receive Date: 20160630
  Receipt Date: 20160912
  Transmission Date: 20161109
  Serious: Yes (Hospitalization)
  Sender: FDA-Public Use
  Company Number: US-JNJFOC-20160501704

PATIENT
  Age: 38 Year
  Sex: Male

DRUGS (2)
  1. XARELTO [Suspect]
     Active Substance: RIVAROXABAN
     Indication: THROMBOSIS PROPHYLAXIS
     Dosage: TAKE ONE TAB BY MOUTH TWICE DAILY AND THEN 20 MG TABLET BY MOUTH ONCE A DAY.
     Route: 048
     Dates: start: 20141028, end: 20141104
  2. XARELTO [Suspect]
     Active Substance: RIVAROXABAN
     Indication: THROMBOSIS PROPHYLAXIS
     Dosage: TAKE ONE TAB BY MOUTH TWICE DAILY AND THEN 20 MG TABLET BY MOUTH ONCE A DAY.
     Route: 048
     Dates: start: 20141028, end: 20141104

REACTIONS (1)
  - Post procedural haemorrhage [Recovered/Resolved]

NARRATIVE: CASE EVENT DATE: 20141103
